FAERS Safety Report 5873731-4 (Version None)
Quarter: 2008Q3

REPORT INFORMATION
  Report Type: 
  Country: None (occurrence: None)
  Receive Date: 20080904
  Receipt Date: 20080904
  Transmission Date: 20090109
  Serious: Yes (Hospitalization)
  Sender: FDA-Public Use
  Company Number: None

PATIENT
  Age: 68 Year
  Sex: Male

DRUGS (1)
  1. HYDROCHLOROTHIAZIDE [Suspect]
     Indication: HYPERTENSION
     Dosage: 25 MG EVERY DAY PO
     Route: 048
     Dates: start: 20080807, end: 20080814

REACTIONS (4)
  - GASTROINTESTINAL HAEMORRHAGE [None]
  - HYPOPHAGIA [None]
  - HYPOTENSION [None]
  - RENAL FAILURE ACUTE [None]
